FAERS Safety Report 5097956-3 (Version None)
Quarter: 2006Q3

REPORT INFORMATION
  Report Type: 
  Country: None (occurrence: None)
  Receive Date: 20060905
  Receipt Date: 20060905
  Transmission Date: 20061208
  Serious: Yes (Hospitalization)
  Sender: FDA-Public Use
  Company Number: None

PATIENT
  Age: 60 Year
  Sex: Male
  Weight: 66.6788 kg

DRUGS (30)
  1. TARCEVA [Suspect]
     Indication: NASAL SINUS CANCER
     Dosage: 150 MG PO QD
     Route: 048
     Dates: start: 20060719
  2. CISPLATIN [Concomitant]
  3. RADIATION THERAPY [Concomitant]
  4. XANAX [Concomitant]
  5. VASOTEC [Concomitant]
  6. VERAPAMIL ER [Concomitant]
  7. PAXIL CR [Concomitant]
  8. VIAGRA [Concomitant]
  9. ADVIL COLD AND SINUS [Concomitant]
  10. ATIVAN [Concomitant]
  11. COMPAZINE [Concomitant]
  12. EMEND [Concomitant]
  13. SULIGEN [Concomitant]
  14. ZANTAC [Concomitant]
  15. SENNUKOT [Concomitant]
  16. M.V.I. [Concomitant]
  17. NARCO [Concomitant]
  18. ZEGARID [Concomitant]
  19. MUCINEX [Concomitant]
  20. FENTANYL [Concomitant]
  21. CLARITIN [Concomitant]
  22. ZIMMERS SWISH [Concomitant]
  23. LEVAQUIN [Concomitant]
  24. MINOCYCLINE HCL [Concomitant]
  25. REGLAN [Concomitant]
  26. ROXANOL [Concomitant]
  27. GUAFENUSSIN [Concomitant]
  28. KETOCONAZOLE OINT [Concomitant]
  29. ADVIL OTC [Concomitant]
  30. TYLENOL [Concomitant]

REACTIONS (16)
  - ASPIRATION [None]
  - BREAKTHROUGH PAIN [None]
  - CARBON MONOXIDE DIFFUSING CAPACITY DECREASED [None]
  - COUGH [None]
  - DIARRHOEA [None]
  - DYSPHAGIA [None]
  - DYSPNOEA [None]
  - INCREASED UPPER AIRWAY SECRETION [None]
  - MUCOSAL INFLAMMATION [None]
  - NAUSEA [None]
  - RASH [None]
  - RASH ERYTHEMATOUS [None]
  - STOMATITIS [None]
  - THROAT IRRITATION [None]
  - VOMITING [None]
  - WEIGHT DECREASED [None]
